FAERS Safety Report 5471912-5 (Version None)
Quarter: 2007Q3

REPORT INFORMATION
  Report Type: 
  Country: None (occurrence: None)
  Receive Date: 20070928
  Receipt Date: 20070918
  Transmission Date: 20080115
  Serious: Yes (Life-Threatening, Hospitalization)
  Sender: FDA-Public Use
  Company Number: FR-PFIZER INC-2007078770

PATIENT
  Age: 85 Year
  Sex: Male

DRUGS (2)
  1. XANAX [Suspect]
     Route: 048
     Dates: start: 20070712, end: 20070715
  2. BAMBUTEROL [Concomitant]

REACTIONS (1)
  - ACIDOSIS [None]
